FAERS Safety Report 12846896 (Version 1)
Quarter: 2016Q4

REPORT INFORMATION
  Report Type: Spontaneous
  Country: US (occurrence: US)
  Receive Date: 20161013
  Receipt Date: 20161013
  Transmission Date: 20170207
  Serious: Yes (Other)
  Sender: FDA-Public Use
  Company Number: None

PATIENT
  Age: 66 Year
  Sex: Female

DRUGS (3)
  1. COPAXONE [Suspect]
     Active Substance: GLATIRAMER ACETATE
     Indication: MAJOR DEPRESSION
  2. COPAXONE [Suspect]
     Active Substance: GLATIRAMER ACETATE
     Indication: MULTIPLE SCLEROSIS
  3. COPAXONE [Suspect]
     Active Substance: GLATIRAMER ACETATE
     Indication: FIBROMYALGIA

REACTIONS (5)
  - Vitamin B complex deficiency [None]
  - Blood sodium decreased [None]
  - Multiple sclerosis [None]
  - JC virus test positive [None]
  - White blood cell count decreased [None]

NARRATIVE: CASE EVENT DATE: 20161013
